FAERS Safety Report 11138820 (Version 2)
Quarter: 2015Q3

REPORT INFORMATION
  Report Type: Spontaneous
  Country: US (occurrence: US)
  Receive Date: 20150527
  Receipt Date: 20150713
  Transmission Date: 20151125
  Serious: Yes (Hospitalization, Other)
  Sender: FDA-Public Use
  Company Number: US-AUROBINDO-AUR-APU-2015-04553

PATIENT
  Age: 77 Year
  Sex: Female
  Weight: 66 kg

DRUGS (7)
  1. GABAPENTIN 100MG [Suspect]
     Active Substance: GABAPENTIN
     Indication: SCIATICA
     Dosage: 300 MG, FOUR TIMES/DAY
     Route: 065
  2. LYRICA [Suspect]
     Active Substance: PREGABALIN
     Indication: NEUROPATHY PERIPHERAL
     Dosage: 75 MG, DAILY
     Route: 065
  3. GABAPENTIN 100MG [Suspect]
     Active Substance: GABAPENTIN
     Dosage: 600 MG, 3 TIMES A DAY
     Route: 065
  4. GABAPENTIN 100MG [Suspect]
     Active Substance: GABAPENTIN
     Dosage: 8 A DAY
     Route: 065
     Dates: end: 201504
  5. LYRICA [Suspect]
     Active Substance: PREGABALIN
     Indication: SCIATICA
     Dosage: 75 MG, TWO TIMES A DAY AS NEEDED
     Route: 065
  6. GABAPENTIN 100MG [Suspect]
     Active Substance: GABAPENTIN
     Indication: NEUROPATHY PERIPHERAL
     Dosage: 100 MG, FOUR TIMES/DAY
     Route: 065
  7. GABAPENTIN 100MG [Suspect]
     Active Substance: GABAPENTIN
     Dosage: 600 MG, FOUR TIMES/DAY
     Route: 065

REACTIONS (12)
  - Drug prescribing error [Unknown]
  - Tremor [Unknown]
  - Fall [Recovered/Resolved]
  - Lethargy [Unknown]
  - Drug ineffective [Unknown]
  - Incorrect dose administered [Recovered/Resolved]
  - Sciatica [Not Recovered/Not Resolved]
  - Neuropathy peripheral [Not Recovered/Not Resolved]
  - Gait disturbance [Unknown]
  - Dizziness [Not Recovered/Not Resolved]
  - Hypokinesia [Unknown]
  - Injury [Unknown]

NARRATIVE: CASE EVENT DATE: 201504
